FAERS Safety Report 19501353 (Version 1)
Quarter: 2021Q3

REPORT INFORMATION
  Report Type: Other
  Country: US (occurrence: US)
  Receive Date: 20210707
  Receipt Date: 20210707
  Transmission Date: 20211014
  Serious: Yes (Hospitalization)
  Sender: FDA-Public Use
  Company Number: US-ROCHE-2861505

PATIENT
  Age: 40 Year
  Sex: Male

DRUGS (2)
  1. DULOXETINE HCL [Concomitant]
     Active Substance: DULOXETINE HYDROCHLORIDE
     Route: 048
  2. OCREVUS [Suspect]
     Active Substance: OCRELIZUMAB
     Indication: RELAPSING MULTIPLE SCLEROSIS
     Dosage: INFUSE 600 MG IV EVERY 6 MONTHS?DATE OF TREATMENT: 01/JUN/2019,17/MAY/2019, 16/NOV/2019, 16/JUL/2020
     Route: 042

REACTIONS (8)
  - Vertigo [Unknown]
  - Muscular weakness [Unknown]
  - COVID-19 [Unknown]
  - Multiple sclerosis relapse [Unknown]
  - Visual impairment [Unknown]
  - Neuralgia [Unknown]
  - Therapeutic response decreased [Unknown]
  - Romberg test positive [Unknown]

NARRATIVE: CASE EVENT DATE: 202011
